FAERS Safety Report 8162159-2 (Version None)
Quarter: 2012Q1

REPORT INFORMATION
  Report Type: 
  Country: None (occurrence: None)
  Receive Date: 20120224
  Receipt Date: 20110907
  Transmission Date: 20120608
  Serious: No
  Sender: FDA-Public Use
  Company Number: US-BRISTOL-MYERS SQUIBB COMPANY-16038358

PATIENT
  Age: 68 Year
  Sex: Male

DRUGS (3)
  1. METFORMIN HCL [Suspect]
  2. GLIPIZIDE [Suspect]
  3. NOVOLIN N [Suspect]

REACTIONS (1)
  - BLOOD GLUCOSE FLUCTUATION [None]
